FAERS Safety Report 16108080 (Version 6)
Quarter: 2020Q2

REPORT INFORMATION
  Report Type: Report from Study
  Country: US (occurrence: US)
  Receive Date: 20190322
  Receipt Date: 20200508
  Transmission Date: 20200713
  Serious: Yes (Hospitalization)
  Sender: FDA-Public Use
  Company Number: US-ACTELION-A-NJ2017-153259

PATIENT
  Age: 65 Year
  Sex: Female

DRUGS (7)
  1. UPTRAVI [Suspect]
     Active Substance: SELEXIPAG
     Dosage: 1200 MCG, BID
     Route: 048
     Dates: start: 20170418
  2. OPSUMIT [Suspect]
     Active Substance: MACITENTAN
     Indication: PULMONARY ARTERIAL HYPERTENSION
     Dosage: 10 MG, QD
     Route: 048
     Dates: start: 20150717
  3. UPTRAVI [Suspect]
     Active Substance: SELEXIPAG
     Dosage: UNK
     Route: 048
     Dates: start: 20170417
  4. UPTRAVI [Suspect]
     Active Substance: SELEXIPAG
     Indication: PULMONARY ARTERIAL HYPERTENSION
     Dosage: 1000 MCG, BID
     Route: 048
     Dates: start: 20150612, end: 20190830
  5. UPTRAVI [Suspect]
     Active Substance: SELEXIPAG
     Dosage: 1400 MCG, BID
     Route: 048
     Dates: start: 20180711
  6. UPTRAVI [Suspect]
     Active Substance: SELEXIPAG
     Dosage: 400 MCG, BID
     Route: 048
  7. UPTRAVI [Suspect]
     Active Substance: SELEXIPAG
     Dosage: 200 MCG, BID
     Route: 048
     Dates: start: 20170321

REACTIONS (26)
  - Therapy non-responder [Unknown]
  - Cough [Unknown]
  - Onychomycosis [Unknown]
  - Right ventricular failure [Unknown]
  - Dyspnoea exertional [Recovered/Resolved]
  - Pulmonary arterial hypertension [Unknown]
  - Clostridium difficile colitis [Unknown]
  - Dizziness [Recovered/Resolved]
  - Oedema [Unknown]
  - Pain [Not Recovered/Not Resolved]
  - Pruritus [Unknown]
  - Oxygen consumption increased [Unknown]
  - Diarrhoea [Unknown]
  - Condition aggravated [Recovered/Resolved]
  - Feeling abnormal [Unknown]
  - Syncope [Unknown]
  - Fatigue [Recovered/Resolved]
  - Myalgia [Not Recovered/Not Resolved]
  - Chest discomfort [Unknown]
  - Pulmonary hypertension [Unknown]
  - Dyspnoea [Recovered/Resolved]
  - Gastrointestinal haemorrhage [Unknown]
  - Colitis [Unknown]
  - Skin laceration [Unknown]
  - Abdominal discomfort [Unknown]
  - Tachycardia [Recovered/Resolved]

NARRATIVE: CASE EVENT DATE: 20170319
